FAERS Safety Report 7537394-4 (Version None)
Quarter: 2011Q2

REPORT INFORMATION
  Report Type: 
  Country: None (occurrence: None)
  Receive Date: 20110609
  Receipt Date: 20110606
  Transmission Date: 20111010
  Serious: Yes (Other)
  Sender: FDA-Public Use
  Company Number: US-AMGEN LTD.-QUU424688

PATIENT
  Age: 78 Year
  Sex: Female

DRUGS (2)
  1. NPLATE [Suspect]
     Indication: IDIOPATHIC THROMBOCYTOPENIC PURPURA
     Dosage: 225 A?G, UNK
     Dates: start: 20090825, end: 20100714
  2. IMMUNOGLOBULINS [Concomitant]
     Dosage: UNK UNK, UNK
     Dates: start: 20090821

REACTIONS (3)
  - SKIN BURNING SENSATION [None]
  - RASH [None]
  - MIXED CONNECTIVE TISSUE DISEASE [None]
